FAERS Safety Report 5046921-0 (Version None)
Quarter: 2006Q2

REPORT INFORMATION
  Report Type: 
  Country: None (occurrence: None)
  Receive Date: 20060630
  Receipt Date: 20060622
  Transmission Date: 20061013
  Serious: Yes (Hospitalization, Other)
  Sender: FDA-Public Use
  Company Number: ESWYE413020FEB06

PATIENT
  Age: 68 Year
  Sex: Male

DRUGS (5)
  1. RAPAMUNE [Suspect]
     Indication: PROPHYLAXIS AGAINST TRANSPLANT REJECTION
     Dosage: 2 MG 1X PER 1 DAY
     Route: 048
     Dates: start: 20031027
  2. PREDNISONE [Concomitant]
  3. CELLCEPT (MYCOPHENOLALTE MOFETIL) [Concomitant]
  4. BISOPROLOL FUMARATE [Concomitant]
  5. HUMAN ACTRAPID (INSULIN HUMAN) [Concomitant]

REACTIONS (3)
  - BLOOD CREATININE INCREASED [None]
  - DYSPNOEA [None]
  - OEDEMA [None]
